FAERS Safety Report 4653467-8 (Version None)
Quarter: 2005Q2

REPORT INFORMATION
  Report Type: 
  Country: None (occurrence: None)
  Receive Date: 20050505
  Receipt Date: 20041203
  Transmission Date: 20051028
  Serious: Yes (Other)
  Sender: FDA-Public Use
  Company Number: GB-GLAXOSMITHKLINE-B0361165A

PATIENT
  Sex: Male

DRUGS (4)
  1. PAROXETINE HYDROCHLORIDE [Suspect]
     Route: 065
     Dates: start: 19960601
  2. NEFAZODONE HCL [Concomitant]
     Route: 065
     Dates: start: 19980801
  3. CARBAMAZEPINE [Concomitant]
     Route: 065
     Dates: start: 19980801
  4. TRAZODONE HCL [Concomitant]
     Route: 065
     Dates: start: 19980801

REACTIONS (7)
  - DEPRESSED MOOD [None]
  - DISTURBANCE IN ATTENTION [None]
  - ILL-DEFINED DISORDER [None]
  - IRRITABILITY [None]
  - OVERDOSE [None]
  - SEXUAL DYSFUNCTION [None]
  - SUICIDAL IDEATION [None]
